FAERS Safety Report 16025333 (Version 1)
Quarter: 2019Q1

REPORT INFORMATION
  Report Type: Spontaneous
  Country: CA (occurrence: CA)
  Receive Date: 20190301
  Receipt Date: 20190301
  Transmission Date: 20190418
  Serious: Yes (Life-Threatening)
  Sender: FDA-Public Use
  Company Number: CA-HLSUS-2019-CA-000209

PATIENT
  Age: 31 Year
  Sex: Male
  Weight: 70 kg

DRUGS (6)
  1. AMLODIPINE [Concomitant]
     Active Substance: AMLODIPINE BESYLATE
  2. RAMIPRIL. [Concomitant]
     Active Substance: RAMIPRIL
  3. LORAZEPAM. [Concomitant]
     Active Substance: LORAZEPAM
  4. CLOZAPINE. [Suspect]
     Active Substance: CLOZAPINE
     Indication: SCHIZOPHRENIA
     Dosage: 162.5 MG 1 EVERY 1 DAY
     Route: 048
  5. METHOTRIMEPRAZINE [Concomitant]
     Active Substance: LEVOMEPROMAZINE
  6. METOPROLOL. [Concomitant]
     Active Substance: METOPROLOL

REACTIONS (3)
  - Myocarditis [Unknown]
  - Heart rate increased [Unknown]
  - Cardiotoxicity [Unknown]
